FAERS Safety Report 4332833-4 (Version None)
Quarter: 2004Q1

REPORT INFORMATION
  Report Type: 
  Country: None (occurrence: None)
  Receive Date: 20040329
  Receipt Date: 20040318
  Transmission Date: 20041129
  Serious: Yes (Death)
  Sender: FDA-Public Use
  Company Number: US-JNJFOC-20040301432

PATIENT
  Age: 22 Year
  Sex: Female

DRUGS (5)
  1. DURAGESIC [Suspect]
     Indication: POSTOPERATIVE ANALGESIA
     Dosage: 75 UG, 2 IN 72 HOUR, TRANSDERMAL
     Route: 062
     Dates: start: 20040211, end: 20040215
  2. DIAZEPAM [Suspect]
     Indication: DRUG USE FOR UNKNOWN INDICATION
  3. OXYCODONE HCL [Suspect]
     Indication: DRUG USE FOR UNKNOWN INDICATION
  4. MORPHINE [Suspect]
     Indication: DRUG USE FOR UNKNOWN INDICATION
  5. GABAPENTIN [Suspect]
     Indication: DRUG USE FOR UNKNOWN INDICATION

REACTIONS (15)
  - AGONAL DEATH STRUGGLE [None]
  - CARDIAC FAILURE [None]
  - CARDIO-RESPIRATORY ARREST [None]
  - CARDIOMEGALY [None]
  - DRUG TOXICITY [None]
  - HEPATIC CONGESTION [None]
  - MUCOUS MEMBRANE DISORDER [None]
  - NERVOUS SYSTEM DISORDER [None]
  - OBESITY [None]
  - OESOPHAGITIS [None]
  - PHARMACEUTICAL PRODUCT COMPLAINT [None]
  - PULMONARY CONGESTION [None]
  - PULMONARY OEDEMA [None]
  - RESPIRATORY FAILURE [None]
  - SCOLIOSIS [None]
